FAERS Safety Report 6360782-9 (Version None)
Quarter: 2009Q3

REPORT INFORMATION
  Report Type: 
  Country: None (occurrence: None)
  Receive Date: 20090918
  Receipt Date: 20090907
  Transmission Date: 20100115
  Serious: Yes (Hospitalization)
  Sender: FDA-Public Use
  Company Number: AU-JNJFOC-20090905360

PATIENT
  Sex: Male

DRUGS (2)
  1. TRAMAL [Suspect]
     Indication: OSTEOARTHRITIS
     Route: 048
  2. PANADOL OSTEO [Suspect]
     Indication: OSTEOARTHRITIS
     Route: 048

REACTIONS (1)
  - AMNESIA [None]
